FAERS Safety Report 8508704-6 (Version None)
Quarter: 2012Q3

REPORT INFORMATION
  Report Type: 
  Country: None (occurrence: None)
  Receive Date: 20120713
  Receipt Date: 20120709
  Transmission Date: 20120928
  Serious: No
  Sender: FDA-Public Use
  Company Number: US-PFIZER INC-2012163943

PATIENT
  Sex: Male

DRUGS (1)
  1. SUTENT [Suspect]
     Indication: METASTATIC RENAL CELL CARCINOMA
     Dosage: UNK
     Dates: start: 20120624

REACTIONS (7)
  - NAUSEA [None]
  - AGEUSIA [None]
  - YELLOW SKIN [None]
  - OCULAR ICTERUS [None]
  - FATIGUE [None]
  - ASTHENIA [None]
  - DECREASED APPETITE [None]
